FAERS Safety Report 4519221-2 (Version None)
Quarter: 2004Q4

REPORT INFORMATION
  Report Type: 
  Country: None (occurrence: None)
  Receive Date: 20041201
  Receipt Date: 20041116
  Transmission Date: 20050328
  Serious: Yes (Death)
  Sender: FDA-Public Use
  Company Number: 8008136

PATIENT

DRUGS (2)
  1. KEPPRA [Suspect]
     Route: 064
  2. EPITOMAX [Concomitant]

REACTIONS (4)
  - DEATH NEONATAL [None]
  - DIAPHRAGMATIC APLASIA [None]
  - DRUG EXPOSURE DURING PREGNANCY [None]
  - PREGNANCY [None]
